FAERS Safety Report 4656161-2 (Version None)
Quarter: 2005Q2

REPORT INFORMATION
  Report Type: 
  Country: None (occurrence: None)
  Receive Date: 20050509
  Receipt Date: 20050425
  Transmission Date: 20051028
  Serious: Yes (Life-Threatening, Hospitalization)
  Sender: FDA-Public Use
  Company Number: CA-ROCHE-402821

PATIENT
  Age: 75 Year
  Sex: Female
  Weight: 54.8 kg

DRUGS (11)
  1. CAPECITABINE [Suspect]
     Route: 048
     Dates: start: 20050404
  2. BEVACIZUMAB [Suspect]
     Route: 042
     Dates: start: 20050404
  3. OXALIPLATIN [Suspect]
     Route: 042
     Dates: start: 20050404
  4. VITAMIN E [Concomitant]
  5. ACTONEL [Concomitant]
  6. CALCIUM GLUCONATE [Concomitant]
  7. VITAMIN D [Concomitant]
  8. FLONASE [Concomitant]
  9. COMBIVENT [Concomitant]
     Dosage: P.R.N.
  10. ZOFRAN [Concomitant]
     Dates: start: 20050404
  11. DECADRON [Concomitant]
     Dates: start: 20050404

REACTIONS (2)
  - DEHYDRATION [None]
  - LARGE INTESTINAL OBSTRUCTION [None]
